FAERS Safety Report 8956838 (Version 2)
Quarter: 2012Q4

REPORT INFORMATION
  Report Type: 
  Country: GB (occurrence: GB)
  Receive Date: 20121211
  Receipt Date: 20121228
  Transmission Date: 20130627
  Serious: Yes (Hospitalization, Other)
  Sender: FDA-Public Use
  Company Number: GB-UCBSA-072544

PATIENT
  Age: 42 Year
  Sex: Female
  Weight: 84 kg

DRUGS (4)
  1. CIMZIA [Suspect]
     Indication: RHEUMATOID ARTHRITIS
     Route: 058
     Dates: start: 20110307, end: 20120907
  2. FOLIC ACID [Concomitant]
     Dates: start: 2005
  3. METHOTREXATE [Concomitant]
     Indication: RHEUMATOID ARTHRITIS
     Dosage: DOSE PER INTAKE: 7.5 AND NUBER OF INTAKES: WEEKLY
     Route: 048
     Dates: start: 2005
  4. RAMIPRIL [Concomitant]
     Indication: BLOOD PRESSURE INCREASED
     Route: 048
     Dates: start: 2010

REACTIONS (2)
  - Pleural fibrosis [Not Recovered/Not Resolved]
  - Pleural effusion [Not Recovered/Not Resolved]
